FAERS Safety Report 14067961 (Version 1)
Quarter: 2017Q4

REPORT INFORMATION
  Report Type: Spontaneous
  Country: US (occurrence: US)
  Receive Date: 20171009
  Receipt Date: 20171009
  Transmission Date: 20180321
  Serious: Yes (Other)
  Sender: FDA-Public Use
  Company Number: None

PATIENT
  Age: 54 Year
  Sex: Female
  Weight: 66.15 kg

DRUGS (1)
  1. OCTAGAM IMMUNE GLOBULIN (HUMAN) [Suspect]
     Active Substance: HUMAN IMMUNOGLOBULIN G
     Indication: TRANSPLANT
     Dosage: ?          OTHER FREQUENCY:MONTHLY;?
     Route: 041
     Dates: start: 20171007, end: 20171007

REACTIONS (1)
  - Rash [None]

NARRATIVE: CASE EVENT DATE: 20171007
